FAERS Safety Report 6819099-8 (Version None)
Quarter: 2010Q2

REPORT INFORMATION
  Report Type: 
  Country: None (occurrence: None)
  Receive Date: 20100630
  Receipt Date: 20100622
  Transmission Date: 20101027
  Serious: Yes (Hospitalization, Congenital Anomaly)
  Sender: FDA-Public Use
  Company Number: 005515

PATIENT
  Sex: Male

DRUGS (1)
  1. KEPPRA [Suspect]
     Dosage: (500 MG BID TRANSPLACENTAL)
     Route: 064

REACTIONS (11)
  - BODY TEMPERATURE DECREASED [None]
  - BREECH PRESENTATION [None]
  - CAESAREAN SECTION [None]
  - CONGENITAL CENTRAL NERVOUS SYSTEM ANOMALY [None]
  - DEVELOPMENTAL DELAY [None]
  - FEEDING DISORDER NEONATAL [None]
  - GASTROOESOPHAGEAL REFLUX DISEASE [None]
  - JAUNDICE NEONATAL [None]
  - MATERNAL DRUGS AFFECTING FOETUS [None]
  - POSTURE ABNORMAL [None]
  - STRABISMUS [None]
